FAERS Safety Report 23056526 (Version 2)
Quarter: 2024Q1

REPORT INFORMATION
  Report Type: Report from Study
  Country: US (occurrence: US)
  Receive Date: 20231011
  Receipt Date: 20240325
  Transmission Date: 20240410
  Serious: Yes (Hospitalization)
  Sender: FDA-Public Use
  Company Number: US-ABBVIE-5435178

PATIENT
  Age: 78 Year
  Sex: Female

DRUGS (3)
  1. VENCLEXTA [Suspect]
     Active Substance: VENETOCLAX
     Indication: Plasma cell myeloma
     Dosage: FORM STRENGTH: 100 MILLIGRAM
     Route: 048
     Dates: start: 20200905
  2. VENCLEXTA [Suspect]
     Active Substance: VENETOCLAX
     Indication: Plasma cell myeloma
     Dosage: FORM STRENGTH: 100 MILLIGRAM
     Route: 048
     Dates: start: 202209
  3. VENCLEXTA [Suspect]
     Active Substance: VENETOCLAX
     Indication: Plasma cell myeloma
     Dosage: FORM STRENGTH: 100 MILLIGRAM, LAST ADMIN DATE: SEP 2020
     Route: 048
     Dates: start: 20200901

REACTIONS (2)
  - Pneumonia [Recovered/Resolved]
  - Gastroenteritis salmonella [Unknown]

NARRATIVE: CASE EVENT DATE: 20230701
